FAERS Safety Report 4655344-5 (Version None)
Quarter: 2005Q1

REPORT INFORMATION
  Report Type: 
  Country: None (occurrence: None)
  Receive Date: 20050331
  Receipt Date: 20050125
  Transmission Date: 20050727
  Serious: No
  Sender: FDA-Public Use
  Company Number: UK109530

PATIENT
  Sex: Female

DRUGS (1)
  1. NEULASTA [Suspect]
     Dosage: SC
     Route: 058

REACTIONS (1)
  - PERIPHERAL VASCULAR DISORDER [None]
